FAERS Safety Report 9653356 (Version 1)
Quarter: 2013Q4

REPORT INFORMATION
  Report Type: Spontaneous
  Country: US (occurrence: US)
  Receive Date: 20131029
  Receipt Date: 20131029
  Transmission Date: 20140711
  Serious: Yes (Other)
  Sender: FDA-Public Use
  Company Number: US-PFIZER INC-2013305275

PATIENT
  Age: 74 Year
  Sex: Female

DRUGS (2)
  1. REVATIO [Suspect]
     Indication: PULMONARY HYPERTENSION
     Dosage: UNK
  2. REVATIO [Suspect]
     Dosage: 1 MG, 3X/DAY
     Dates: start: 20130725, end: 20131011

REACTIONS (12)
  - Dyspnoea [Unknown]
  - Respiratory tract congestion [Unknown]
  - Pain [Unknown]
  - Pain in extremity [Unknown]
  - Hypoaesthesia [Unknown]
  - Swelling [Unknown]
  - Insomnia [Unknown]
  - Fluid retention [Unknown]
  - Myalgia [Unknown]
  - Vision blurred [Unknown]
  - Headache [Unknown]
  - Flushing [Unknown]
